FAERS Safety Report 8842414 (Version 2)
Quarter: 2014Q1

REPORT INFORMATION
  Report Type: Spontaneous
  Country: DK (occurrence: CA)
  Receive Date: 20121016
  Receipt Date: 20140225
  Transmission Date: 20141002
  Serious: Yes (Other)
  Sender: FDA-Public Use
  Company Number: CA-FRI-1000039404

PATIENT
  Sex: Female

DRUGS (11)
  1. ESCITALOPRAM [Suspect]
  2. DICLOFENAC [Suspect]
  3. GILENYA [Suspect]
     Indication: RELAPSING-REMITTING MULTIPLE SCLEROSIS
     Dosage: 0.5 MG
     Route: 048
     Dates: start: 20120515, end: 20120612
  4. AMITRIPTYLINE [Concomitant]
  5. BACLOFEN [Concomitant]
  6. CLONAZEPAM [Concomitant]
  7. GABAPENTIN [Concomitant]
  8. NEXIUM [Concomitant]
  9. TYLENOL EXTRA-STRENGTH EZ [Concomitant]
  10. VESICARE [Concomitant]
  11. WATER PILLS [Concomitant]

REACTIONS (15)
  - Abdominal discomfort [Recovered/Resolved]
  - Abnormal sensation in eye [Recovered/Resolved]
  - Dyspnoea [Unknown]
  - Drug interaction [Unknown]
  - Eye swelling [Recovered/Resolved]
  - Headache [Recovered/Resolved]
  - Lymphocyte count decreased [Recovering/Resolving]
  - Multiple sclerosis relapse [Recovered/Resolved]
  - Nausea [Recovered/Resolved]
  - Neutropenia [Recovering/Resolving]
  - Pyrexia [Recovered/Resolved]
  - Vision blurred [Not Recovered/Not Resolved]
  - White blood cell count decreased [Recovering/Resolving]
  - Fatigue [Recovered/Resolved]
  - Muscular weakness [Recovered/Resolved]
